FAERS Safety Report 13334801 (Version 1)
Quarter: 2017Q1

REPORT INFORMATION
  Report Type: Spontaneous
  Country: CN (occurrence: CN)
  Receive Date: 20170314
  Receipt Date: 20170314
  Transmission Date: 20170428
  Serious: Yes (Hospitalization)
  Sender: FDA-Public Use
  Company Number: PHHY2017CN036644

PATIENT
  Age: 69 Year
  Sex: Male

DRUGS (3)
  1. VALSARTAN. [Suspect]
     Active Substance: VALSARTAN
     Indication: HYPERTENSION
     Dosage: 1 DF, BID
     Route: 065
  2. NIFEDIPINE. [Concomitant]
     Active Substance: NIFEDIPINE
     Indication: HYPERTENSION
     Dosage: 1 DF, UNK
     Route: 048
  3. CARVEDILOL. [Concomitant]
     Active Substance: CARVEDILOL
     Indication: HYPERTENSION
     Dosage: UNK UNK, BID
     Route: 065

REACTIONS (12)
  - Chronic kidney disease [Unknown]
  - Urine analysis abnormal [Recovering/Resolving]
  - Decreased appetite [Recovering/Resolving]
  - Oedema peripheral [Unknown]
  - Benign prostatic hyperplasia [Unknown]
  - Weight increased [Recovering/Resolving]
  - Hypertension [Unknown]
  - Renal atrophy [Unknown]
  - Poor quality sleep [Recovering/Resolving]
  - Back pain [Unknown]
  - Eyelid oedema [Unknown]
  - Calculus urinary [Unknown]

NARRATIVE: CASE EVENT DATE: 2016
